FAERS Safety Report 9695958 (Version 1)
Quarter: 2013Q4

REPORT INFORMATION
  Report Type: Spontaneous
  Country: US (occurrence: None)
  Receive Date: 20131118
  Receipt Date: 20131118
  Transmission Date: 20140711
  Serious: Yes (Other)
  Sender: FDA-Public Use
  Company Number: None

PATIENT
  Age: 58 Year
  Sex: Female
  Weight: 61.69 kg

DRUGS (8)
  1. NAPROSYN [Suspect]
  2. MOTRIN [Suspect]
  3. CELEBREX [Suspect]
  4. PRILOSEC [Suspect]
  5. PREVACID [Suspect]
  6. ZANTAC 150 [Suspect]
  7. TAGAMET [Suspect]
  8. ACIPHEX [Suspect]

REACTIONS (2)
  - Gastrooesophageal reflux disease [None]
  - Insomnia [None]
